FAERS Safety Report 25480070 (Version 1)
Quarter: 2025Q2

REPORT INFORMATION
  Report Type: Spontaneous
  Country: ES (occurrence: ES)
  Receive Date: 20250625
  Receipt Date: 20250625
  Transmission Date: 20250717
  Serious: Yes (Hospitalization)
  Sender: ELI LILLY AND COMPANY
  Company Number: None

PATIENT
  Age: 20 Year
  Sex: Female

DRUGS (6)
  1. FLUOXETINE HYDROCHLORIDE [Interacting]
     Active Substance: FLUOXETINE HYDROCHLORIDE
     Indication: Suicide attempt
     Route: 065
     Dates: start: 20130821, end: 20130821
  2. GABAPENTIN [Interacting]
     Active Substance: GABAPENTIN
     Indication: Suicide attempt
     Route: 065
     Dates: start: 20130821, end: 20130821
  3. ACETAMINOPHEN [Interacting]
     Active Substance: ACETAMINOPHEN
     Indication: Suicide attempt
     Route: 065
     Dates: start: 20130821, end: 20130821
  4. BROMAZEPAM [Interacting]
     Active Substance: BROMAZEPAM
     Indication: Suicide attempt
     Route: 065
     Dates: start: 20130821, end: 20130821
  5. QUETIAPINE [Interacting]
     Active Substance: QUETIAPINE
     Indication: Suicide attempt
     Route: 065
     Dates: start: 20130821, end: 20130821
  6. PENICILLIN V POTASSIUM [Interacting]
     Active Substance: PENICILLIN V POTASSIUM
     Indication: Suicide attempt
     Route: 065
     Dates: start: 20130821, end: 20130821

REACTIONS (4)
  - Hepatic cytolysis [Recovered/Resolved]
  - Rhabdomyolysis [Recovering/Resolving]
  - Intentional overdose [Recovered/Resolved]
  - Drug interaction [Unknown]

NARRATIVE: CASE EVENT DATE: 20130821
